FAERS Safety Report 4353872-3 (Version None)
Quarter: 2004Q2

REPORT INFORMATION
  Report Type: 
  Country: None (occurrence: None)
  Receive Date: 20040503
  Receipt Date: 20040422
  Transmission Date: 20050107
  Serious: Yes (Hospitalization)
  Sender: FDA-Public Use
  Company Number: 2004210243FR

PATIENT
  Age: 51 Year
  Sex: Male

DRUGS (4)
  1. VANTIN [Suspect]
     Indication: DRUG USE FOR UNKNOWN INDICATION
     Dosage: ORAL
     Route: 048
     Dates: start: 20031109, end: 20031109
  2. SOLUPRED (PREDNISOLONE SODUIM SULFOBENZOATE) [Concomitant]
  3. FENSPIRIDE HYDROCHLORIDE (FENSPIRIDE HYDROCHLORIDE) [Concomitant]
  4. RHINOFLUIMUCIL (TUAMINOPHEPTAINE) [Concomitant]

REACTIONS (3)
  - ANGIONEUROTIC OEDEMA [None]
  - HYPOTENSION [None]
  - SKIN TEST POSITIVE [None]
